FAERS Safety Report 7008770-3 (Version None)
Quarter: 2010Q3

REPORT INFORMATION
  Report Type: 
  Country: None (occurrence: None)
  Receive Date: 20100921
  Receipt Date: 20100903
  Transmission Date: 20110219
  Serious: Yes (Death, Other)
  Sender: FDA-Public Use
  Company Number: GB-ACCORD-004694

PATIENT
  Age: 68 Year
  Sex: Male

DRUGS (3)
  1. MYCOPHENOLATE MOFETIL [Suspect]
     Indication: RENAL TRANSPLANT
  2. TACROLIMUS [Suspect]
     Indication: RENAL TRANSPLANT
  3. PREDNISOLONE [Suspect]
     Indication: RENAL TRANSPLANT

REACTIONS (5)
  - BRONCHOPULMONARY ASPERGILLOSIS [None]
  - CARDIOPULMONARY FAILURE [None]
  - OPHTHALMOPLEGIA [None]
  - SEPSIS [None]
  - SINUSITIS ASPERGILLUS [None]
